FAERS Safety Report 8869315 (Version 2)
Quarter: 2012Q4

REPORT INFORMATION
  Report Type: 
  Country: US (occurrence: US)
  Receive Date: 20121028
  Receipt Date: 20121108
  Transmission Date: 20130627
  Serious: Yes (Hospitalization)
  Sender: FDA-Public Use
  Company Number: US-AMGEN-USASP2012068190

PATIENT
  Sex: Female
  Weight: 59.86 kg

DRUGS (5)
  1. NEULASTA [Suspect]
     Indication: NEUTROPENIA
     Dosage: 6 mg, UNK
     Route: 058
     Dates: start: 20120904
  2. IFOSFAMIDE [Suspect]
     Indication: HODGKIN^S DISEASE
     Dosage: 8350 mg, per chemo regim
     Route: 042
     Dates: start: 20120829, end: 20120831
  3. CARBOPLATIN [Suspect]
     Indication: HODGKIN^S DISEASE
     Dosage: 626 mg, per chemo regim
     Route: 042
     Dates: start: 20120829, end: 20120831
  4. ETOPOSIDE [Suspect]
     Indication: HODGKIN^S DISEASE
     Dosage: UNK UNK, per chemo regim
     Route: 042
     Dates: start: 20120829, end: 20120831
  5. MESNA [Concomitant]
     Indication: HODGKIN^S DISEASE
     Dosage: 8350 mg, per chemo regim
     Route: 042
     Dates: start: 20120829, end: 20120831

REACTIONS (4)
  - Febrile neutropenia [Recovered/Resolved]
  - Haemoglobin decreased [None]
  - Haematocrit decreased [None]
  - Platelet count decreased [None]
